FAERS Safety Report 12181529 (Version 1)
Quarter: 2016Q1

REPORT INFORMATION
  Report Type: Spontaneous
  Country: SG (occurrence: SG)
  Receive Date: 20160315
  Receipt Date: 20160315
  Transmission Date: 20160526
  Serious: Yes (Hospitalization, Other)
  Sender: FDA-Public Use
  Company Number: SG-BRISTOL-MYERS SQUIBB COMPANY-BMS-2016-016695

PATIENT

DRUGS (1)
  1. REYATAZ [Suspect]
     Active Substance: ATAZANAVIR SULFATE
     Indication: HIV INFECTION
     Dosage: 300 MG, UNK
     Route: 065

REACTIONS (1)
  - Sepsis [Unknown]
